FAERS Safety Report 20144819 (Version 4)
Quarter: 2022Q1

REPORT INFORMATION
  Report Type: Report from Study
  Country: US (occurrence: US)
  Receive Date: 20211203
  Receipt Date: 20220223
  Transmission Date: 20220423
  Serious: Yes (Other)
  Sender: FDA-Public Use
  Company Number: US-CELGENE-USA-20211106076

PATIENT
  Age: 51 Year
  Sex: Female

DRUGS (1)
  1. ZEPOSIA [Suspect]
     Active Substance: OZANIMOD HYDROCHLORIDE
     Indication: Multiple sclerosis
     Dosage: 0346 MILLIGRAM
     Route: 048
     Dates: start: 20211118

REACTIONS (2)
  - Uveitis [Unknown]
  - Blindness [Unknown]

NARRATIVE: CASE EVENT DATE: 20211118
